FAERS Safety Report 4400630-7 (Version None)
Quarter: 2004Q3

REPORT INFORMATION
  Report Type: 
  Country: None (occurrence: None)
  Receive Date: 20040719
  Receipt Date: 20040709
  Transmission Date: 20050211
  Serious: Yes (Other)
  Sender: FDA-Public Use
  Company Number: PHEH2004US07444

PATIENT
  Age: 80 Year
  Sex: Female

DRUGS (1)
  1. AREDIA [Suspect]
     Indication: BREAST CANCER METASTATIC
     Dosage: UNK/UNK
     Dates: start: 20010601, end: 20040401

REACTIONS (2)
  - DENTAL TREATMENT [None]
  - OSTEOMYELITIS [None]
